FAERS Safety Report 9360978 (Version 1)
Quarter: 2013Q2

REPORT INFORMATION
  Report Type: Spontaneous
  Country: CA (occurrence: CA)
  Receive Date: 20130621
  Receipt Date: 20130621
  Transmission Date: 20140414
  Serious: Yes (Hospitalization)
  Sender: FDA-Public Use
  Company Number: CA-TEVA-414095USA

PATIENT
  Age: 68 Year
  Sex: Male

DRUGS (9)
  1. DIVALPROEX [Suspect]
     Dosage: 250 MILLIGRAM DAILY; ENTERIC COATED
     Route: 048
  2. DIVALPROEX [Suspect]
     Dosage: 500 MILLIGRAM DAILY;
     Route: 048
  3. DIVALPROEX [Suspect]
     Dosage: 1000 MILLIGRAM DAILY;
     Route: 048
  4. CLONAZEPAM [Concomitant]
  5. CLOZAPINE [Concomitant]
  6. FENOFIBRATE (MICRO) [Concomitant]
  7. OLANZAPINE [Concomitant]
  8. QUETIAPINE [Concomitant]
  9. SYNTHROID [Concomitant]

REACTIONS (2)
  - Amylase increased [Recovered/Resolved]
  - Lipase increased [Recovered/Resolved]
